FAERS Safety Report 13073466 (Version 1)
Quarter: 2016Q4

REPORT INFORMATION
  Report Type: Spontaneous
  Country: US (occurrence: US)
  Receive Date: 20161229
  Receipt Date: 20161229
  Transmission Date: 20170207
  Serious: Yes (Other)
  Sender: FDA-Public Use
  Company Number: US-BAYER-2014-173355

PATIENT
  Age: 71 Year
  Sex: Female
  Weight: 68.03 kg

DRUGS (16)
  1. DIVALPROEX SODIUM. [Concomitant]
     Active Substance: DIVALPROEX SODIUM
  2. LEVOTHYROXINE. [Concomitant]
     Active Substance: LEVOTHYROXINE
  3. IMODIUM [LOPERAMIDE HYDROCHLORIDE,SIMETICONE] [Concomitant]
  4. CITRACAL CALCIUM + D SLOW RELEASE 1200 [Suspect]
     Active Substance: CALCIUM CITRATE
     Dosage: 2 DF, UNK
     Route: 048
     Dates: start: 2012, end: 201401
  5. CITRACAL PETITES [Concomitant]
     Active Substance: CALCIUM CITRATE
  6. VESICARE [Concomitant]
     Active Substance: SOLIFENACIN SUCCINATE
  7. VENLAFAXINE [Concomitant]
     Active Substance: VENLAFAXINE HYDROCHLORIDE
  8. TRUBIOTICS [Suspect]
     Active Substance: BIFIDOBACTERIUM LONGUM\LACTOBACILLUS ACIDOPHILUS
     Indication: GASTROINTESTINAL DISORDER
     Dosage: 1 DF, QD WITH A PIECE OF TOAST
     Route: 048
  9. BAYER LOW DOSE [Suspect]
     Active Substance: ASPIRIN
     Indication: PROPHYLAXIS
     Dosage: 3 DF, QD
     Route: 048
     Dates: end: 2015
  10. VENLAFAXINE HYDROCHLORIDE. [Concomitant]
     Active Substance: VENLAFAXINE HYDROCHLORIDE
  11. ATENOLOL. [Concomitant]
     Active Substance: ATENOLOL
  12. PROPANTHELINE [Concomitant]
     Active Substance: PROPANTHELINE
  13. BAYER LOW DOSE [Suspect]
     Active Substance: ASPIRIN
     Indication: ANALGESIC THERAPY
     Dosage: UNK
     Route: 048
     Dates: start: 1950
  14. OMEPRAZOLE. [Concomitant]
     Active Substance: OMEPRAZOLE
  15. TRUBIOTICS [Suspect]
     Active Substance: BIFIDOBACTERIUM LONGUM\LACTOBACILLUS ACIDOPHILUS
     Indication: GASTROINTESTINAL DISORDER
     Dosage: 1 DF, UNK, BOTTLE COUNT 30CT
     Route: 048
     Dates: start: 2014
  16. ALPRAZOLAM. [Concomitant]
     Active Substance: ALPRAZOLAM

REACTIONS (5)
  - Epistaxis [Recovered/Resolved]
  - Off label use [Unknown]
  - Choking [Recovered/Resolved]
  - Wrong technique in product usage process [None]
  - Wrong technique in product usage process [None]

NARRATIVE: CASE EVENT DATE: 2012
